FAERS Safety Report 12503017 (Version 1)
Quarter: 2016Q2

REPORT INFORMATION
  Report Type: Spontaneous
  Country: US (occurrence: None)
  Receive Date: 20160627
  Receipt Date: 20160627
  Transmission Date: 20160815
  Serious: No
  Sender: FDA-Public Use
  Company Number: None

PATIENT
  Age: 10 Year
  Sex: Male
  Weight: 28 kg

DRUGS (1)
  1. OCTAGAM IMMUNE GLOBULIN (HUMAN) [Suspect]
     Active Substance: HUMAN IMMUNOGLOBULIN G
     Indication: IMMUNODEFICIENCY COMMON VARIABLE
     Dosage: 17.5 G MONTLY CONTINUOUS INTRAVENOUS DRIP
     Route: 041
     Dates: start: 20160624, end: 20160624

REACTIONS (3)
  - Hypersensitivity [None]
  - Product quality issue [None]
  - Urticaria [None]

NARRATIVE: CASE EVENT DATE: 20160624
